FAERS Safety Report 9303396 (Version 1)
Quarter: 2013Q2

REPORT INFORMATION
  Report Type: Spontaneous
  Country: US (occurrence: None)
  Receive Date: 20130521
  Receipt Date: 20130521
  Transmission Date: 20140414
  Serious: Yes (Other)
  Sender: FDA-Public Use
  Company Number: None

PATIENT
  Age: 58 Year
  Sex: Male
  Weight: 131.09 kg

DRUGS (2)
  1. VICTOZA [Suspect]
     Indication: DIABETES MELLITUS
     Route: 058
     Dates: start: 20100923, end: 20120218
  2. AMARYL [Suspect]
     Indication: DIABETES MELLITUS
     Dosage: 2-4 MG, DAILY, ORAL
     Route: 048
     Dates: start: 20110412

REACTIONS (1)
  - Pancreatic carcinoma [None]
